FAERS Safety Report 8276079-6 (Version None)
Quarter: 2012Q2

REPORT INFORMATION
  Report Type: 
  Country: None (occurrence: None)
  Receive Date: 20120412
  Receipt Date: 20120402
  Transmission Date: 20120825
  Serious: Yes (Life-Threatening)
  Sender: FDA-Public Use
  Company Number: CA-JNJFOC-20120303689

PATIENT
  Sex: Male
  Weight: 56.2 kg

DRUGS (5)
  1. REMICADE [Suspect]
     Route: 042
     Dates: start: 20120221
  2. REMICADE [Suspect]
     Route: 042
     Dates: start: 20080101, end: 20090101
  3. REMICADE [Suspect]
     Route: 042
     Dates: start: 20120306
  4. REMICADE [Suspect]
     Indication: RHEUMATOID ARTHRITIS
     Route: 042
     Dates: start: 20120402
  5. METHOTREXATE [Concomitant]
     Route: 048

REACTIONS (5)
  - FLUSHING [None]
  - INFUSION RELATED REACTION [None]
  - COUGH [None]
  - DYSPNOEA [None]
  - PARAESTHESIA [None]
